FAERS Safety Report 5450047-1 (Version None)
Quarter: 2007Q3

REPORT INFORMATION
  Report Type: 
  Country: None (occurrence: None)
  Receive Date: 20070912
  Receipt Date: 20070905
  Transmission Date: 20080115
  Serious: Yes (Death)
  Sender: FDA-Public Use
  Company Number: US-GENENTECH-247191

PATIENT
  Sex: Female
  Weight: 78 kg

DRUGS (2)
  1. BEVACIZUMAB [Suspect]
     Indication: GLIOBLASTOMA MULTIFORME
     Dosage: 793 UNK, Q2W
     Route: 042
     Dates: start: 20070112
  2. IRINOTECAN HCL [Suspect]
     Indication: GLIOBLASTOMA MULTIFORME
     Dosage: 225 UNK, Q2W
     Route: 042
     Dates: start: 20070813

REACTIONS (1)
  - SUDDEN DEATH [None]
